FAERS Safety Report 9992470 (Version 2)
Quarter: 2014Q1

REPORT INFORMATION
  Report Type: Report from Study
  Country: IT (occurrence: IT)
  Receive Date: 20140310
  Receipt Date: 20140324
  Transmission Date: 20141002
  Serious: Yes (Hospitalization)
  Sender: FDA-Public Use
  Company Number: IT-GLAXOSMITHKLINE-Z0022244A

PATIENT
  Age: 60 Year
  Sex: Female
  Weight: 78 kg

DRUGS (2)
  1. DABRAFENIB [Suspect]
     Indication: MALIGNANT MELANOMA
     Dosage: 150MG TWICE PER DAY
     Route: 048
     Dates: start: 20140204
  2. TRAMETINIB [Suspect]
     Indication: MALIGNANT MELANOMA
     Dosage: 2MG PER DAY
     Route: 048
     Dates: start: 20140204

REACTIONS (2)
  - Pyrexia [Recovered/Resolved]
  - Dehydration [Recovered/Resolved]
